FAERS Safety Report 6611714-7 (Version None)
Quarter: 2010Q1

REPORT INFORMATION
  Report Type: 
  Country: None (occurrence: None)
  Receive Date: 20100301
  Receipt Date: 20100301
  Transmission Date: 20100710
  Serious: Yes (Other)
  Sender: FDA-Public Use
  Company Number: None

PATIENT
  Sex: Male

DRUGS (1)
  1. HUMALOG [Suspect]
     Indication: DIABETES MELLITUS
     Dosage: INJECT 25 UNITS IN THE MORNING AND 20 UNITS IN THE EVENING

REACTIONS (2)
  - PRODUCT COLOUR ISSUE [None]
  - RASH [None]
